FAERS Safety Report 18144531 (Version 1)
Quarter: 2020Q3

REPORT INFORMATION
  Report Type: Spontaneous
  Country: DE (occurrence: DE)
  Receive Date: 20200813
  Receipt Date: 20200813
  Transmission Date: 20201103
  Serious: Yes (Other)
  Sender: FDA-Public Use
  Company Number: NVSC2020DE221102

PATIENT
  Sex: Male
  Weight: 103 kg

DRUGS (1)
  1. AZITHROMYCIN 500 ? 1 A PHARMA [Suspect]
     Active Substance: AZITHROMYCIN
     Indication: PRODUCT USED FOR UNKNOWN INDICATION
     Dosage: 3 DF, ONCE/SINGLE
     Route: 065
     Dates: start: 20200727, end: 20200727

REACTIONS (2)
  - Loss of consciousness [Not Recovered/Not Resolved]
  - Overdose [Unknown]

NARRATIVE: CASE EVENT DATE: 20200727
